FAERS Safety Report 5311757-X (Version None)
Quarter: 2007Q2

REPORT INFORMATION
  Report Type: 
  Country: None (occurrence: None)
  Receive Date: 20070430
  Receipt Date: 20060302
  Transmission Date: 20071010
  Serious: No
  Sender: FDA-Public Use
  Company Number: 2006UW03621

PATIENT
  Age: 59 Year
  Sex: Female
  Weight: 62.5 kg

DRUGS (4)
  1. NEXIUM [Suspect]
     Indication: REFLUX OESOPHAGITIS
     Route: 048
     Dates: end: 20060201
  2. NEXIUM [Suspect]
     Indication: THROAT IRRITATION
     Route: 048
     Dates: end: 20060201
  3. LORAZEPAM [Concomitant]
  4. LISINOPRIL [Concomitant]

REACTIONS (3)
  - DYSKINESIA [None]
  - DYSPEPSIA [None]
  - MITRAL VALVE PROLAPSE [None]
